FAERS Safety Report 20865469 (Version 1)
Quarter: 2022Q2

REPORT INFORMATION
  Report Type: Spontaneous
  Country: JP (occurrence: JP)
  Receive Date: 20220524
  Receipt Date: 20220524
  Transmission Date: 20220721
  Serious: Yes (Other)
  Sender: FDA-Public Use
  Company Number: JP-CELGENE-JPN-20220206935

PATIENT
  Age: 69 Year
  Sex: Female

DRUGS (3)
  1. ABRAXANE [Suspect]
     Active Substance: PACLITAXEL
     Indication: Adenocarcinoma pancreas
     Dosage: FREQUENCY TEXT: NOT PROVIDED
     Route: 065
  2. GEMCITABINE [Suspect]
     Active Substance: GEMCITABINE
     Indication: Adenocarcinoma pancreas
     Dosage: FREQUENCY TEXT: NOT PROVIDED
     Route: 065
  3. PROSTAGLANDIN-E2 [Concomitant]
     Indication: Vasoconstriction
     Dosage: FREQUENCY TEXT: NOT PROVIDED
     Route: 042

REACTIONS (3)
  - Raynaud^s phenomenon [Unknown]
  - Extremity necrosis [Unknown]
  - Gangrene [Unknown]
